FAERS Safety Report 16283190 (Version 1)
Quarter: 2019Q2

REPORT INFORMATION
  Report Type: Spontaneous
  Country: PL (occurrence: PL)
  Receive Date: 20190507
  Receipt Date: 20190507
  Transmission Date: 20190711
  Serious: Yes (Other)
  Sender: FDA-Public Use
  Company Number: PL-TEVA-2019-PL-1048580

PATIENT
  Age: 81 Year
  Sex: Female
  Weight: 84 kg

DRUGS (2)
  1. CAPECITABIN [Suspect]
     Active Substance: CAPECITABINE
     Indication: COLON CANCER
     Route: 048
     Dates: start: 20140724
  2. IRINOTEKANIJEV KLORID MYLAN 20 MG/ML [Suspect]
     Active Substance: IRINOTECAN HYDROCHLORIDE
     Indication: COLON CANCER
     Route: 042
     Dates: start: 20140724

REACTIONS (3)
  - Lacrimation increased [Unknown]
  - Palmar-plantar erythrodysaesthesia syndrome [Unknown]
  - Mucosal inflammation [Unknown]

NARRATIVE: CASE EVENT DATE: 20141120
